FAERS Safety Report 5764168-7 (Version None)
Quarter: 2008Q2

REPORT INFORMATION
  Report Type: 
  Country: None (occurrence: None)
  Receive Date: 20080610
  Receipt Date: 20080527
  Transmission Date: 20081010
  Serious: No
  Sender: FDA-Public Use
  Company Number: FR-PFIZER INC-2008031353

PATIENT
  Age: 28 Year
  Sex: Male

DRUGS (1)
  1. CHANTIX [Suspect]
     Route: 048
     Dates: start: 20080128, end: 20080201

REACTIONS (1)
  - NO ADVERSE EVENT [None]
